FAERS Safety Report 18919900 (Version 2)
Quarter: 2021Q1

REPORT INFORMATION
  Report Type: Spontaneous
  Country: JP (occurrence: JP)
  Receive Date: 20210222
  Receipt Date: 20210305
  Transmission Date: 20210420
  Serious: Yes (Hospitalization, Other)
  Sender: FDA-Public Use
  Company Number: JP-AMGEN-JPNSP2021013103

PATIENT
  Age: 83 Year
  Sex: Female
  Weight: 40 kg

DRUGS (12)
  1. PRALIA [Suspect]
     Active Substance: DENOSUMAB
     Indication: SPINAL COMPRESSION FRACTURE
     Dosage: 60 MILLIGRAM
     Route: 058
     Dates: start: 20201130
  2. PRALIA [Suspect]
     Active Substance: DENOSUMAB
     Dosage: UNK
     Route: 065
  3. POLAPREZINC [Concomitant]
     Active Substance: POLAPREZINC
     Indication: GASTRITIS PROPHYLAXIS
     Dosage: 75 MG, BID
     Route: 048
     Dates: start: 20201120
  4. SODIUM RABEPRAZOLE [Concomitant]
     Active Substance: RABEPRAZOLE SODIUM
     Indication: GASTRITIS PROPHYLAXIS
     Dosage: 10 MG, QD
     Route: 048
  5. DARBEPOETIN ALFA [Concomitant]
     Active Substance: DARBEPOETIN ALFA
     Dosage: 60 UG, ONCE EVERY 1 WK
     Route: 042
     Dates: start: 20201229
  6. ROCALTROL [Concomitant]
     Active Substance: CALCITRIOL
     Indication: HYPERPARATHYROIDISM SECONDARY
     Dosage: 0.5 UG, 3 TIMES PER 1WK
     Route: 042
     Dates: start: 20200929
  7. CELECOXIB. [Concomitant]
     Active Substance: CELECOXIB
     Indication: SPINAL COMPRESSION FRACTURE
     Dosage: UNK
  8. BAYASPIRIN [Concomitant]
     Active Substance: ASPIRIN
     Indication: MYOCARDIAL INFARCTION
     Dosage: 100 MG, QD
     Route: 048
  9. CELECOXIB. [Concomitant]
     Active Substance: CELECOXIB
     Indication: OSTEOPOROSIS
     Dosage: 100 MG, BID
     Route: 048
     Dates: start: 20201120
  10. DARBEPOETIN ALFA [Concomitant]
     Active Substance: DARBEPOETIN ALFA
     Indication: NEPHROGENIC ANAEMIA
     Dosage: 20 UG, ONCE EVERY 1 WK
     Route: 042
     Dates: start: 20200929, end: 20201214
  11. DARBEPOETIN ALFA [Concomitant]
     Active Substance: DARBEPOETIN ALFA
     Dosage: 30 UG, ONCE EVERY 1 WK
     Route: 042
     Dates: start: 20201215, end: 20201228
  12. FESIN [SACCHARATED IRON OXIDE] [Concomitant]
     Active Substance: IRON SUCROSE
     Indication: NEPHROGENIC ANAEMIA
     Dosage: 40 MG, ONCE EVERY 1 WK
     Route: 042
     Dates: start: 20201210

REACTIONS (2)
  - Myelosuppression [Recovering/Resolving]
  - Anaemia [Recovering/Resolving]

NARRATIVE: CASE EVENT DATE: 20201216
